FAERS Safety Report 10830318 (Version 4)
Quarter: 2015Q2

REPORT INFORMATION
  Report Type: Spontaneous
  Country: JP (occurrence: JP)
  Receive Date: 20150219
  Receipt Date: 20150407
  Transmission Date: 20150821
  Serious: Yes (Other)
  Sender: FDA-Public Use
  Company Number: JP-009507513-1502JPN007512

PATIENT
  Age: 69 Year
  Sex: Male
  Weight: 73 kg

DRUGS (5)
  1. FEBURIC [Concomitant]
     Active Substance: FEBUXOSTAT
     Dosage: 20 MG, QD
     Route: 048
  2. PEGINTRON [Suspect]
     Active Substance: PEGINTERFERON ALFA-2B
     Dosage: 100 MICROGRAM, QW
     Route: 058
     Dates: start: 20141204, end: 20150209
  3. REBETOL [Suspect]
     Active Substance: RIBAVIRIN
     Dosage: 400 MG, BID
     Route: 048
     Dates: start: 20141204, end: 20150209
  4. VANIHEP CAPSULES 150MG [Suspect]
     Active Substance: VANIPREVIR
     Dosage: 300 MG, BID
     Route: 048
     Dates: start: 20141204, end: 20150209
  5. HARNAL [Concomitant]
     Active Substance: TAMSULOSIN HYDROCHLORIDE
     Dosage: 0.2 MG, QD
     Route: 048

REACTIONS (1)
  - Toxic skin eruption [Recovered/Resolved]

NARRATIVE: CASE EVENT DATE: 20150208
